FAERS Safety Report 25033096 (Version 3)
Quarter: 2025Q3

REPORT INFORMATION
  Report Type: Spontaneous
  Country: JP (occurrence: JP)
  Receive Date: 20250303
  Receipt Date: 20250702
  Transmission Date: 20251021
  Serious: Yes (Hospitalization)
  Sender: EISAI
  Company Number: JP-Eisai-EC-2025-185068

PATIENT
  Age: 64 Year
  Sex: Female

DRUGS (5)
  1. LENVIMA [Suspect]
     Active Substance: LENVATINIB
     Indication: Endometrial cancer
     Dates: start: 20240401, end: 20240422
  2. LENVIMA [Suspect]
     Active Substance: LENVATINIB
     Dates: start: 20240429, end: 2024
  3. LENVIMA [Suspect]
     Active Substance: LENVATINIB
     Dates: start: 20241227, end: 20250121
  4. LENVIMA [Suspect]
     Active Substance: LENVATINIB
     Dates: start: 2024, end: 20241211
  5. KEYTRUDA [Suspect]
     Active Substance: PEMBROLIZUMAB
     Indication: Endometrial cancer
     Dates: start: 20240401, end: 20241121

REACTIONS (3)
  - Gastrointestinal perforation [Recovering/Resolving]
  - Female genital tract fistula [Recovering/Resolving]
  - Vulval ulceration [Unknown]

NARRATIVE: CASE EVENT DATE: 20241201
